FAERS Safety Report 17592932 (Version 1)
Quarter: 2020Q1

REPORT INFORMATION
  Report Type: Spontaneous
  Country: AU (occurrence: AU)
  Receive Date: 20200327
  Receipt Date: 20200327
  Transmission Date: 20200409
  Serious: Yes (Hospitalization)
  Sender: FDA-Public Use
  Company Number: AU-NOVOPROD-720423

PATIENT
  Sex: Female

DRUGS (2)
  1. SAXENDA [Suspect]
     Active Substance: LIRAGLUTIDE
     Dosage: UNK (AT NIGHT)
     Route: 065
  2. SAXENDA [Suspect]
     Active Substance: LIRAGLUTIDE
     Indication: OBESITY
     Dosage: UNK
     Route: 065

REACTIONS (9)
  - Pancreatic disorder [Unknown]
  - Migraine [Unknown]
  - Cholelithiasis [Unknown]
  - Sleep disorder [Unknown]
  - Vaginal haemorrhage [Recovered/Resolved]
  - Acne [Unknown]
  - Hunger [Unknown]
  - Asthenia [Unknown]
  - Malaise [Recovered/Resolved]
